FAERS Safety Report 8156051-7 (Version None)
Quarter: 2012Q1

REPORT INFORMATION
  Report Type: 
  Country: None (occurrence: None)
  Receive Date: 20120222
  Receipt Date: 20120210
  Transmission Date: 20120608
  Serious: Yes (Hospitalization, Other)
  Sender: FDA-Public Use
  Company Number: US-ELI_LILLY_AND_COMPANY-US201202003939

PATIENT
  Age: 40 Year
  Sex: Female

DRUGS (4)
  1. CYMBALTA [Suspect]
     Dosage: 60 MG, QD
     Dates: start: 20110901, end: 20111001
  2. SOTALOL HCL [Concomitant]
     Dosage: 120 MG, BID
  3. CYMBALTA [Suspect]
     Indication: MAJOR DEPRESSION
     Dosage: 30 MG, QD
     Dates: start: 20110101, end: 20110901
  4. CYMBALTA [Suspect]
     Dosage: 30 MG, QD
     Dates: start: 20111001, end: 20120101

REACTIONS (5)
  - SKIN EXFOLIATION [None]
  - PAIN IN EXTREMITY [None]
  - DRY SKIN [None]
  - TRANSIENT ISCHAEMIC ATTACK [None]
  - BLISTER [None]
